FAERS Safety Report 7983597-4 (Version None)
Quarter: 2011Q4

REPORT INFORMATION
  Report Type: 
  Country: None (occurrence: None)
  Receive Date: 20111215
  Receipt Date: 20111212
  Transmission Date: 20120403
  Serious: Yes (Hospitalization)
  Sender: FDA-Public Use
  Company Number: PHEH2011US011478

PATIENT
  Sex: Female

DRUGS (3)
  1. DIOVAN HCT [Suspect]
     Dosage: 1 DF, 320/25 MG DAILY
     Dates: start: 20111006
  2. DEPAKOTE [Concomitant]
  3. LIPITOR [Concomitant]

REACTIONS (1)
  - SUICIDE ATTEMPT [None]
